FAERS Safety Report 10267283 (Version 1)
Quarter: 2014Q2

REPORT INFORMATION
  Report Type: Spontaneous
  Country: GB (occurrence: GB)
  Receive Date: 20140630
  Receipt Date: 20140630
  Transmission Date: 20141212
  Serious: Yes (Other)
  Sender: FDA-Public Use
  Company Number: GB-RANBAXY-2014RR-82927

PATIENT
  Age: 56 Year
  Sex: Female

DRUGS (2)
  1. CO-AMOXICLAV [Suspect]
     Indication: CHALAZION
     Dosage: 500/125
     Route: 048
     Dates: start: 20140514, end: 20140515
  2. EPILIM CHRONO [Concomitant]
     Indication: PRODUCT USED FOR UNKNOWN INDICATION
     Dosage: UNK
     Route: 065

REACTIONS (2)
  - Dizziness [Recovered/Resolved]
  - Nausea [Recovered/Resolved]
